FAERS Safety Report 25410341 (Version 2)
Quarter: 2025Q4

REPORT INFORMATION
  Report Type: Spontaneous
  Country: US (occurrence: US)
  Receive Date: 20250608
  Receipt Date: 20251110
  Transmission Date: 20260117
  Serious: No
  Sender: SANOFI AVENTIS
  Company Number: US-SA-2025SA160043

PATIENT
  Sex: Female
  Weight: 65 kg

DRUGS (3)
  1. DUPIXENT [Suspect]
     Active Substance: DUPILUMAB
     Indication: Dermatitis atopic
     Dosage: 300 MG, QOW
     Route: 058
     Dates: end: 202410
  2. DUPIXENT [Suspect]
     Active Substance: DUPILUMAB
     Dosage: UNK
  3. IRON [Concomitant]
     Active Substance: IRON

REACTIONS (9)
  - Swelling [Unknown]
  - Pain [Unknown]
  - Gait disturbance [Unknown]
  - Fungal infection [Unknown]
  - Urinary tract infection [Unknown]
  - Urine abnormality [Unknown]
  - Dysuria [Unknown]
  - Dermatitis atopic [Unknown]
  - Intentional dose omission [Unknown]
